FAERS Safety Report 17267366 (Version 1)
Quarter: 2020Q1

REPORT INFORMATION
  Report Type: Spontaneous
  Country: US (occurrence: US)
  Receive Date: 20200114
  Receipt Date: 20200114
  Transmission Date: 20200409
  Serious: Yes (Life-Threatening, Other)
  Sender: FDA-Public Use
  Company Number: US-AMGEN-USASP2020003814

PATIENT

DRUGS (2)
  1. BLINATUMOMAB [Suspect]
     Active Substance: BLINATUMOMAB
     Indication: B-CELL LYMPHOMA
  2. BLINATUMOMAB [Suspect]
     Active Substance: BLINATUMOMAB
     Indication: B PRECURSOR TYPE ACUTE LEUKAEMIA
     Dosage: 9 MICROGRAM, QD
     Route: 065

REACTIONS (15)
  - Non-Hodgkin^s lymphoma recurrent [Unknown]
  - Anaemia [Unknown]
  - Nausea [Unknown]
  - Chills [Unknown]
  - Vomiting [Unknown]
  - Neutropenia [Unknown]
  - Thrombocytopenia [Unknown]
  - Feeling abnormal [Unknown]
  - Night sweats [Unknown]
  - Acute lymphocytic leukaemia recurrent [Unknown]
  - Diarrhoea [Unknown]
  - Headache [Unknown]
  - Tremor [Unknown]
  - Pyrexia [Unknown]
  - Dysmetria [Unknown]
